FAERS Safety Report 24106722 (Version 1)
Quarter: 2024Q3

REPORT INFORMATION
  Report Type: Spontaneous
  Country: US (occurrence: US)
  Receive Date: 20240717
  Receipt Date: 20240717
  Transmission Date: 20241017
  Serious: No
  Sender: INCYTE
  Company Number: US-INCYTE CORPORATION-2024IN006799

PATIENT

DRUGS (1)
  1. OPZELURA [Suspect]
     Active Substance: RUXOLITINIB PHOSPHATE
     Dosage: 1.5 PERCENT, 60GM, BID (APPLY A THIN LAYER TO AFFECTED AREA(S) ON UPPER BACK \T\ BILATERAL SHOULDERS
     Route: 061
     Dates: start: 20240501

REACTIONS (1)
  - Sinusitis [Unknown]
